FAERS Safety Report 5518298-5 (Version None)
Quarter: 2007Q4

REPORT INFORMATION
  Report Type: 
  Country: None (occurrence: None)
  Receive Date: 20071113
  Receipt Date: 20071113
  Transmission Date: 20080405
  Serious: Yes (Hospitalization)
  Sender: FDA-Public Use
  Company Number: None

PATIENT
  Sex: Female
  Weight: 62.5 kg

DRUGS (2)
  1. TOPOTECAN [Suspect]
     Indication: OVARIAN CANCER METASTATIC
     Dosage: 3 MG/M2 D1,8,15 Q 21 D IV
     Route: 042
     Dates: start: 20070921, end: 20071005
  2. VELCADE [Suspect]
     Indication: OVARIAN CANCER METASTATIC
     Dosage: 1.6 MG/M2 D1,8,15 Q 21 D IV
     Route: 042
     Dates: start: 20070921, end: 20071005

REACTIONS (13)
  - ABDOMINAL MASS [None]
  - ANAEMIA [None]
  - ANOREXIA [None]
  - CONDITION AGGRAVATED [None]
  - DEPRESSION [None]
  - DIARRHOEA [None]
  - DISEASE PROGRESSION [None]
  - NAUSEA [None]
  - PELVIC MASS [None]
  - PYREXIA [None]
  - URINARY TRACT INFECTION [None]
  - VOMITING [None]
  - WHITE BLOOD CELL COUNT INCREASED [None]
